FAERS Safety Report 5057298-9 (Version None)
Quarter: 2006Q3

REPORT INFORMATION
  Report Type: 
  Country: None (occurrence: None)
  Receive Date: 20060721
  Receipt Date: 20050725
  Transmission Date: 20061208
  Serious: No
  Sender: FDA-Public Use
  Company Number: US-GLAXOSMITHKLINE-A0567628A

PATIENT
  Age: 59 Year
  Sex: Male

DRUGS (3)
  1. AVANDIA [Suspect]
     Dosage: 8MG PER DAY
     Route: 048
  2. METFORMIN [Concomitant]
     Route: 065
  3. GLYBURIDE [Concomitant]
     Route: 065

REACTIONS (2)
  - DIZZINESS [None]
  - JOINT SWELLING [None]
